FAERS Safety Report 9523132 (Version 3)
Quarter: 2013Q4

REPORT INFORMATION
  Report Type: Report from Study
  Country: US (occurrence: US)
  Receive Date: 20130913
  Receipt Date: 20131001
  Transmission Date: 20140711
  Serious: Yes (Death, Life-Threatening, Hospitalization)
  Sender: FDA-Public Use
  Company Number: US-009507513-1309USA005594

PATIENT
  Age: 38 Year
  Sex: Male
  Weight: 96.7 kg

DRUGS (3)
  1. VORINOSTAT [Suspect]
     Indication: ACUTE MYELOID LEUKAEMIA
     Dosage: 500 MG, TID (DAYS 1-3)
     Route: 048
     Dates: start: 20130906, end: 20130909
  2. CYTARABINE [Suspect]
     Indication: ACUTE MYELOID LEUKAEMIA
     Dosage: 1500 MG/M2, QD (DAYS 4-7)
     Route: 042
     Dates: start: 20130909, end: 20130910
  3. IDARUBICIN [Suspect]
     Indication: ACUTE MYELOID LEUKAEMIA
     Dosage: 12 MG/M2, QD (DAYS 4-6)
     Route: 042
     Dates: start: 20130909, end: 20130910

REACTIONS (5)
  - Haemorrhage intracranial [Fatal]
  - Respiratory failure [Not Recovered/Not Resolved]
  - Lung infection [Not Recovered/Not Resolved]
  - Leukocytosis [Not Recovered/Not Resolved]
  - Brain oedema [Not Recovered/Not Resolved]
